FAERS Safety Report 11908527 (Version 1)
Quarter: 2016Q1

REPORT INFORMATION
  Report Type: Spontaneous
  Country: FR (occurrence: FR)
  Receive Date: 20160111
  Receipt Date: 20160111
  Transmission Date: 20160526
  Serious: Yes (Disabling)
  Sender: FDA-Public Use
  Company Number: FR-VIIV HEALTHCARE LIMITED-FR2016GSK002140

PATIENT
  Age: 4 Month

DRUGS (5)
  1. RETROVIR [Suspect]
     Active Substance: ZIDOVUDINE
     Indication: PROPHYLAXIS AGAINST HIV INFECTION
     Dosage: UNK UNK, BID
     Route: 064
     Dates: start: 20090623
  2. LOPINAVIR [Suspect]
     Active Substance: LOPINAVIR
     Dosage: 20 MG/KG, UNK
     Route: 048
     Dates: start: 20090624, end: 20090723
  3. RETROVIR [Suspect]
     Active Substance: ZIDOVUDINE
     Dosage: 4 MG/M2, UNK
     Dates: end: 20090624
  4. LOPINAVIR [Suspect]
     Active Substance: LOPINAVIR
     Indication: PROPHYLAXIS AGAINST HIV INFECTION
     Dosage: UNK UNK, BID
     Route: 064
     Dates: start: 20090113, end: 20090623
  5. COMBIVIR [Suspect]
     Active Substance: LAMIVUDINE\ZIDOVUDINE
     Indication: PROPHYLAXIS AGAINST HIV INFECTION
     Dosage: UNK
     Route: 064
     Dates: start: 20090113, end: 20090623

REACTIONS (3)
  - Foetal exposure during pregnancy [Unknown]
  - Cerebral ventricle dilatation [Recovering/Resolving]
  - Macrocephaly [Recovering/Resolving]

NARRATIVE: CASE EVENT DATE: 200911
